FAERS Safety Report 9577933 (Version 1)
Quarter: 2013Q4

REPORT INFORMATION
  Report Type: Spontaneous
  Country: US (occurrence: US)
  Receive Date: 20131001
  Receipt Date: 20131001
  Transmission Date: 20140711
  Serious: No
  Sender: FDA-Public Use
  Company Number: US-AMGEN-USASP2013010368

PATIENT
  Sex: Female

DRUGS (11)
  1. ENBREL [Suspect]
     Indication: RHEUMATOID ARTHRITIS
     Dosage: 50 MG, QWK
  2. PREDNISONE [Concomitant]
     Dosage: 5 MG, UNK
  3. METHOTREXATE [Concomitant]
     Dosage: 2.5 MG, UNK
  4. CYMBALTA [Concomitant]
     Dosage: 60 MG, UNK
  5. ARAVA [Concomitant]
     Dosage: 10 MG, UNK
  6. ASPIRIN [Concomitant]
     Dosage: 81 MG, UNK
  7. FOLIC ACID [Concomitant]
     Dosage: UNK
  8. PLAQUENIL                          /00072602/ [Concomitant]
     Dosage: 200 MG, UNK
  9. PREVACID [Concomitant]
     Dosage: 15 MG, UNK
  10. BENICAR [Concomitant]
     Dosage: 5 MG, UNK
  11. TRAMADOL HCL [Concomitant]
     Dosage: 50 MG, UNK

REACTIONS (3)
  - Pain [Unknown]
  - Swelling [Unknown]
  - Musculoskeletal stiffness [Unknown]
